FAERS Safety Report 7727522-X (Version None)
Quarter: 2011Q3

REPORT INFORMATION
  Report Type: 
  Country: None (occurrence: None)
  Receive Date: 20110902
  Receipt Date: 20110830
  Transmission Date: 20111222
  Serious: No
  Sender: FDA-Public Use
  Company Number: US-PFIZER INC-2011183300

PATIENT
  Sex: Male
  Weight: 77.551 kg

DRUGS (8)
  1. SPIRIVA [Concomitant]
     Indication: RESPIRATORY DISORDER
     Dosage: UNK
  2. HYDROCODONE [Concomitant]
     Indication: PAIN
  3. CHANTIX [Suspect]
     Dosage: 0.5 MG, 1X/DAY
     Route: 048
     Dates: start: 20110802
  4. CHANTIX [Suspect]
     Indication: SMOKING CESSATION THERAPY
     Dosage: 0.5 MG, UNK
     Dates: start: 20110725
  5. FENTANYL [Concomitant]
     Indication: PAIN
     Dosage: 25 UG, 3X/DAY
  6. FENTANYL [Concomitant]
  7. HYDROCODONE [Concomitant]
     Indication: BACK PAIN
  8. LORAZEPAM [Concomitant]
     Indication: BACK PAIN
     Dosage: 1 MG, 1 OR 2 AT BEDTIME

REACTIONS (6)
  - PARAESTHESIA [None]
  - ANXIETY [None]
  - TOBACCO USER [None]
  - DISTURBANCE IN ATTENTION [None]
  - HEADACHE [None]
  - TREMOR [None]
